FAERS Safety Report 9219357 (Version 4)
Quarter: 2013Q2

REPORT INFORMATION
  Report Type: Spontaneous
  Country: US (occurrence: None)
  Receive Date: 20130405
  Receipt Date: 20130531
  Transmission Date: 20140414
  Serious: Yes (Disabling)
  Sender: FDA-Public Use
  Company Number: AUR-APL-2013-02701

PATIENT
  Age: 56 Year
  Sex: Male
  Weight: 123 kg

DRUGS (8)
  1. METOPROLOL [Suspect]
     Indication: HYPERTENSION
     Dosage: 25MG (25MG, 1 IN 1D) ORAL
     Route: 048
     Dates: start: 2012
  2. CELECOXIB; IBUPROFEN; NAPROXEN; PLACEBO [Suspect]
     Indication: OSTEOARTHRITIS
     Dosage: (3 IN 1 D) ORAL
     Dates: start: 20121128, end: 20130312
  3. ASA (ACETYLSALICYLIC ACID) [Suspect]
     Indication: CARDIOVASCULAR EVENT PROPHYLAXIS
     Dosage: 81MG, 1D, ORAL
     Route: 048
     Dates: start: 2011, end: 20130418
  4. NEXIUM (ESOMEPRAZOLE MAGNESIUM) [Concomitant]
  5. GEODON (ZIPRASIDONE HYDROCHLORIDE) [Concomitant]
  6. REMERON (MIRTAZAPINE) [Concomitant]
  7. LORAZEPAM (LORAZEPAM) [Concomitant]
  8. NTG [Concomitant]

REACTIONS (11)
  - Local swelling [None]
  - Local swelling [None]
  - Hypoaesthesia [None]
  - Dysarthria [None]
  - Blood pressure increased [None]
  - Wheezing [None]
  - Dysarthria [None]
  - Cerebrovascular accident [None]
  - Atelectasis [None]
  - Headache [None]
  - Sensory disturbance [None]
